FAERS Safety Report 4932041-X (Version None)
Quarter: 2006Q1

REPORT INFORMATION
  Report Type: 
  Country: None (occurrence: None)
  Receive Date: 20060303
  Receipt Date: 20051024
  Transmission Date: 20060701
  Serious: Yes (Hospitalization, Other)
  Sender: FDA-Public Use
  Company Number: FR-BRISTOL-MYERS SQUIBB COMPANY-13158191

PATIENT
  Age: 46 Year
  Sex: Male
  Weight: 65 kg

DRUGS (9)
  1. TAXOL [Suspect]
     Indication: LUNG NEOPLASM MALIGNANT
     Route: 042
     Dates: start: 20050718, end: 20050718
  2. CARBOPLATIN FAULDING [Suspect]
     Indication: LUNG NEOPLASM MALIGNANT
     Route: 042
     Dates: start: 20050718, end: 20050718
  3. VIDEX [Concomitant]
     Route: 048
     Dates: end: 20050725
  4. SUSTIVA [Concomitant]
     Route: 048
     Dates: end: 20050725
  5. NORVIR [Concomitant]
     Dates: end: 20050725
  6. INVIRASE [Concomitant]
     Indication: HIV TEST POSITIVE
     Dates: end: 20050725
  7. BACTRIM [Concomitant]
     Dates: end: 20050725
  8. SOLUPRED [Concomitant]
     Route: 042
  9. ZOPHREN [Concomitant]
     Route: 042

REACTIONS (11)
  - ANAEMIA [None]
  - DYSPHAGIA [None]
  - FEBRILE NEUTROPENIA [None]
  - HYPOKALAEMIA [None]
  - HYPONATRAEMIA [None]
  - PANCYTOPENIA [None]
  - PYREXIA [None]
  - RALES [None]
  - RENAL FAILURE [None]
  - SINUS TACHYCARDIA [None]
  - TACHYPNOEA [None]
